FAERS Safety Report 18922766 (Version 3)
Quarter: 2021Q2

REPORT INFORMATION
  Report Type: Report from Study
  Country: US (occurrence: US)
  Receive Date: 20210222
  Receipt Date: 20210412
  Transmission Date: 20210717
  Serious: No
  Sender: FDA-Public Use
  Company Number: US-BRISTOL-MYERS SQUIBB COMPANY-BMS-2021-014745

PATIENT
  Age: 65 Year
  Sex: Female
  Weight: 99.79 kg

DRUGS (3)
  1. ABATACEPT [Suspect]
     Active Substance: ABATACEPT
     Indication: RAYNAUD^S PHENOMENON
  2. ABATACEPT [Suspect]
     Active Substance: ABATACEPT
     Indication: RHEUMATOID ARTHRITIS
     Dosage: 125 MILLIGRAM, QWK
     Route: 058
     Dates: start: 20210317
  3. ABATACEPT [Suspect]
     Active Substance: ABATACEPT
     Indication: SJOGREN^S SYNDROME

REACTIONS (3)
  - Malaise [Unknown]
  - Dizziness [Unknown]
  - Balance disorder [Unknown]
